FAERS Safety Report 14794346 (Version 2)
Quarter: 2018Q2

REPORT INFORMATION
  Report Type: Spontaneous
  Country: JP (occurrence: JP)
  Receive Date: 20180423
  Receipt Date: 20180517
  Transmission Date: 20180711
  Serious: Yes (Other)
  Sender: FDA-Public Use
  Company Number: JP-ABBVIE-18P-087-2325716-00

PATIENT
  Age: 23 Year
  Sex: Female

DRUGS (5)
  1. EXCEGRAN [Suspect]
     Active Substance: ZONISAMIDE
     Indication: SEIZURE
     Route: 048
  2. VALERIN [Suspect]
     Active Substance: VALPROATE SODIUM
     Route: 048
  3. EXCEGRAN [Suspect]
     Active Substance: ZONISAMIDE
     Route: 048
  4. MYSTAN [Suspect]
     Active Substance: CLOBAZAM
     Indication: SEIZURE
     Route: 048
  5. VALERIN [Suspect]
     Active Substance: VALPROATE SODIUM
     Indication: SEIZURE
     Route: 048

REACTIONS (1)
  - Exposure during pregnancy [Unknown]
